FAERS Safety Report 18842414 (Version 2)
Quarter: 2021Q1

REPORT INFORMATION
  Report Type: Spontaneous
  Country: US (occurrence: US)
  Receive Date: 20210203
  Receipt Date: 20210318
  Transmission Date: 20210419
  Serious: No
  Sender: FDA-Public Use
  Company Number: US-ASTRAZENECA-2021A001625

PATIENT
  Sex: Female
  Weight: 77.1 kg

DRUGS (1)
  1. SYMBICORT [Suspect]
     Active Substance: BUDESONIDE\FORMOTEROL FUMARATE DIHYDRATE
     Indication: COUGH
     Dosage: SYMBICORT 80/4.5 MCG, 2 PUFFS, Q12 HOURS APART
     Route: 055
     Dates: start: 2020

REACTIONS (4)
  - Drug delivery system malfunction [Unknown]
  - Drug dose omission by device [Unknown]
  - Device malfunction [Unknown]
  - Cough [Not Recovered/Not Resolved]
